FAERS Safety Report 21995512 (Version 2)
Quarter: 2023Q1

REPORT INFORMATION
  Report Type: Spontaneous
  Country: KZ (occurrence: KZ)
  Receive Date: 20230215
  Receipt Date: 20230227
  Transmission Date: 20230418
  Serious: Yes (Hospitalization)
  Sender: FDA-Public Use
  Company Number: KZ-002147023-NVSC2023KZ029193

PATIENT
  Age: 3 Month
  Sex: Female

DRUGS (1)
  1. CEFTRIAXONE [Suspect]
     Active Substance: CEFTRIAXONE
     Indication: Pneumonia
     Dosage: UNK
     Route: 065

REACTIONS (3)
  - Hypersensitivity [Recovering/Resolving]
  - Oedema [Recovering/Resolving]
  - Toxic skin eruption [Recovering/Resolving]
